FAERS Safety Report 5481243-5 (Version None)
Quarter: 2007Q4

REPORT INFORMATION
  Report Type: 
  Country: None (occurrence: None)
  Receive Date: 20071010
  Receipt Date: 20071004
  Transmission Date: 20080405
  Serious: Yes (Other)
  Sender: FDA-Public Use
  Company Number: JP-BAYER-200710717BYL

PATIENT
  Sex: Female

DRUGS (3)
  1. ADALAT [Suspect]
     Indication: HYPERTENSION
     Dosage: TOTAL DAILY DOSE: 20 MG  UNIT DOSE: 20 MG
     Route: 048
     Dates: start: 20070501, end: 20070713
  2. RENIVACE [Concomitant]
     Indication: HYPERTENSION
     Route: 048
  3. ESTAZOLAM [Concomitant]
     Indication: INSOMNIA
     Route: 048
     Dates: start: 20070713

REACTIONS (1)
  - BLOOD CREATINE PHOSPHOKINASE INCREASED [None]
